FAERS Safety Report 10547752 (Version 1)
Quarter: 2014Q4

REPORT INFORMATION
  Report Type: Spontaneous
  Country: US (occurrence: None)
  Receive Date: 20141027
  Receipt Date: 20141027
  Transmission Date: 20150529
  Serious: Yes (Disabling)
  Sender: FDA-Public Use
  Company Number: None

PATIENT
  Age: 75 Year
  Sex: Female
  Weight: 63.5 kg

DRUGS (1)
  1. LISINOPRIL 40 MG LUPIN PHARMACE [Suspect]
     Active Substance: LISINOPRIL
     Indication: HYPERTENSION
     Route: 048
     Dates: start: 20140401, end: 20140907

REACTIONS (6)
  - Retching [None]
  - Nasopharyngitis [None]
  - Cough [None]
  - Asthma [None]
  - Sinus congestion [None]
  - Bronchitis [None]

NARRATIVE: CASE EVENT DATE: 20140401
